FAERS Safety Report 23090017 (Version 2)
Quarter: 2024Q1

REPORT INFORMATION
  Report Type: Spontaneous
  Country: NL (occurrence: NL)
  Receive Date: 20231020
  Receipt Date: 20240311
  Transmission Date: 20240410
  Serious: Yes (Hospitalization, Other)
  Sender: FDA-Public Use
  Company Number: NL-MLMSERVICE-20231004-4582246-1

PATIENT
  Age: 33 Year
  Sex: Female
  Weight: 56.6 kg

DRUGS (4)
  1. VANCOMYCIN HYDROCHLORIDE [Suspect]
     Active Substance: VANCOMYCIN HYDROCHLORIDE
     Indication: Peritonitis
     Dosage: LOADING DOSE OF 2000 MG VANCOMYCIN, DISSOLVED IN HER STANDARD DWELL VOLUME OF 1500 ML PD SOLUTION
     Route: 033
  2. VANCOMYCIN HYDROCHLORIDE [Suspect]
     Active Substance: VANCOMYCIN HYDROCHLORIDE
     Indication: Micrococcus infection
     Dosage: LOADING DOSE OF 1000 MG VANCOMYCIN IN 1500 ML PD SOLUTION
     Route: 033
  3. VANCOMYCIN HYDROCHLORIDE [Suspect]
     Active Substance: VANCOMYCIN HYDROCHLORIDE
     Dosage: 500 MG EVERY 2-3 DAYS
     Route: 033
  4. CALCIUM CHLORIDE\DEXTROSE\MAGNESIUM CHLORIDE\SODIUM CHLORIDE [Concomitant]
     Active Substance: CALCIUM CHLORIDE\DEXTROSE\MAGNESIUM CHLORIDE\SODIUM CHLORIDE
     Indication: Peritoneal dialysis
     Dosage: 1500 ML
     Route: 033

REACTIONS (3)
  - Vancomycin infusion reaction [Recovering/Resolving]
  - Antibiotic level above therapeutic [Recovered/Resolved]
  - Off label use [Unknown]
